FAERS Safety Report 23258903 (Version 1)
Quarter: 2023Q4

REPORT INFORMATION
  Report Type: Spontaneous
  Country: US (occurrence: US)
  Receive Date: 20231204
  Receipt Date: 20231204
  Transmission Date: 20240110
  Serious: Yes (Hospitalization, Other)
  Sender: FDA-Public Use
  Company Number: US-FreseniusKabi-FK202319349

PATIENT
  Age: 15 Year
  Sex: Female

DRUGS (3)
  1. METHOTREXATE [Suspect]
     Active Substance: METHOTREXATE
     Indication: B-cell type acute leukaemia
     Dosage: INTERIM MAINTENANCE I?HIGH DOSE METHOTREXATE (HD-MTX)
  2. METHOTREXATE [Suspect]
     Active Substance: METHOTREXATE
     Dosage: INTERIM MAINTENANCE II?CONSISTS OF 5 DOSES OF INTRAVENOUS METHOTREXATE AT 10-DAY INTERVALS, STARTING
  3. PEGASPARGASE [Concomitant]
     Active Substance: PEGASPARGASE
     Indication: B-cell type acute leukaemia
     Dosage: 2500 IU/M2 /DOSE (WHICH, WAS CAPPED AT 3750 INTERNATIONAL UNITS/M2?/DOSE)

REACTIONS (3)
  - Pancreatitis [Recovered/Resolved]
  - Acute kidney injury [Recovered/Resolved]
  - Hepatic failure [Recovered/Resolved]
